FAERS Safety Report 19444082 (Version 2)
Quarter: 2021Q2

REPORT INFORMATION
  Report Type: Report from Study
  Country: CO (occurrence: CO)
  Receive Date: 20210621
  Receipt Date: 20210624
  Transmission Date: 20210717
  Serious: Yes (Hospitalization, Other)
  Sender: FDA-Public Use
  Company Number: CO-SEATTLE GENETICS-2021SGN02748

PATIENT
  Age: 19 Year
  Sex: Female
  Weight: 49 kg

DRUGS (1)
  1. BRENTUXIMAB VEDOTIN [Suspect]
     Active Substance: BRENTUXIMAB VEDOTIN
     Indication: HODGKIN^S DISEASE
     Dosage: 84 MILLIGRAM, Q3WEEKS
     Route: 042
     Dates: start: 20210305, end: 20210510

REACTIONS (8)
  - Skin hypopigmentation [Not Recovered/Not Resolved]
  - Alopecia [Not Recovered/Not Resolved]
  - Metastases to lung [Not Recovered/Not Resolved]
  - Drug ineffective [Unknown]
  - Product dose omission issue [Unknown]
  - Skin discolouration [Not Recovered/Not Resolved]
  - Disease progression [Unknown]
  - Back pain [Not Recovered/Not Resolved]

NARRATIVE: CASE EVENT DATE: 202104
